FAERS Safety Report 5599980-0 (Version None)
Quarter: 2008Q1

REPORT INFORMATION
  Report Type: 
  Country: None (occurrence: None)
  Receive Date: 20080123
  Receipt Date: 20080111
  Transmission Date: 20080703
  Serious: Yes (Hospitalization)
  Sender: FDA-Public Use
  Company Number: CH-ASTRAZENECA-2008PK00109

PATIENT
  Age: 25 Year
  Sex: Female

DRUGS (6)
  1. SEROQUEL [Suspect]
     Dates: start: 20071002, end: 20071126
  2. CLOPIN [Suspect]
     Dosage: 12.5-25 MG DAILY
     Route: 048
     Dates: start: 20070831, end: 20070912
  3. CLOPIN [Suspect]
     Dosage: 37.5-50 MG DAILY
     Route: 048
     Dates: start: 20070913, end: 20070926
  4. FLUVOXAMINE MALEATE [Concomitant]
     Dosage: 25-75 MG DAILY
     Dates: start: 20070901, end: 20070903
  5. VALIUM [Concomitant]
     Dosage: 15 MG TO 30 MG
     Route: 048
     Dates: start: 20071003, end: 20071207
  6. VALIUM [Concomitant]
     Dosage: 10 MG TO 15 MG
     Route: 048
     Dates: start: 20071208

REACTIONS (1)
  - NEUTROPENIA [None]
